FAERS Safety Report 10005924 (Version 4)
Quarter: 2014Q2

REPORT INFORMATION
  Report Type: Report from Study
  Country: CA (occurrence: CA)
  Receive Date: 20140313
  Receipt Date: 20140620
  Transmission Date: 20141212
  Serious: Yes (Hospitalization, Other)
  Sender: FDA-Public Use
  Company Number: CA-UCBSA-111152

PATIENT
  Age: 47 Year
  Sex: Female
  Weight: 89 kg

DRUGS (11)
  1. CERTOLIZUMAB PEGOL RA [Suspect]
     Indication: RHEUMATOID ARTHRITIS
     Dosage: EXPIRY DATE: MAR-2015
     Route: 058
     Dates: start: 20121219, end: 20140518
  2. CERTOLIZUMAB PEGOL RA [Suspect]
     Dosage: Q2 WEEKS X3
     Route: 058
     Dates: start: 20121107, end: 20121205
  3. PLAQUENIL [Concomitant]
     Indication: RHEUMATOID ARTHRITIS
     Dosage: 400 MG, ONCE DAILY (QD)
     Route: 048
  4. SYNTHROID [Concomitant]
     Indication: HYPOTHYROIDISM
     Dosage: .125 MG, ONCE DAILY (QD)
     Route: 048
  5. NEXIUM [Concomitant]
     Indication: PROPHYLAXIS AGAINST GASTROINTESTINAL ULCER
     Dosage: 40 MG, ONCE DAILY (QD)
     Route: 048
  6. AMITRIPTYLINE [Concomitant]
     Indication: ANALGESIC THERAPY
     Dosage: DOSE: 25 MG HS
     Route: 048
  7. CALCIUM [Concomitant]
  8. VITAMIN D [Concomitant]
  9. MULTIVITAMINS [Concomitant]
  10. CRANBERRY [Concomitant]
     Dosage: UNK UNK, 2X/DAY (BID)
  11. VALTREX [Concomitant]
     Indication: ORAL HERPES
     Dosage: UNK UNK, AS NEEDED (PRN)

REACTIONS (5)
  - Herpes zoster [Not Recovered/Not Resolved]
  - Gallbladder cancer [Not Recovered/Not Resolved]
  - Cholecystitis [Not Recovered/Not Resolved]
  - Urinary tract infection [Not Recovered/Not Resolved]
  - Vulvovaginal mycotic infection [Not Recovered/Not Resolved]
